FAERS Safety Report 21239460 (Version 1)
Quarter: 2022Q3

REPORT INFORMATION
  Report Type: Spontaneous
  Country: US (occurrence: None)
  Receive Date: 20220821
  Receipt Date: 20220821
  Transmission Date: 20221027
  Serious: No
  Sender: FDA-Public Use
  Company Number: None

PATIENT
  Age: 33 Year
  Sex: Female
  Weight: 85.5 kg

DRUGS (1)
  1. PAXLOVID [Suspect]
     Active Substance: NIRMATRELVIR\RITONAVIR
     Indication: SARS-CoV-2 test positive
     Route: 048
     Dates: start: 20220806, end: 20220809

REACTIONS (5)
  - SARS-CoV-2 test positive [None]
  - Suicidal ideation [None]
  - Depression [None]
  - Mood swings [None]
  - Psychiatric symptom [None]

NARRATIVE: CASE EVENT DATE: 20220806
